FAERS Safety Report 21194511 (Version 3)
Quarter: 2022Q3

REPORT INFORMATION
  Report Type: Report from Study
  Country: DE (occurrence: DE)
  Receive Date: 20220810
  Receipt Date: 20220826
  Transmission Date: 20221026
  Serious: No
  Sender: FDA-Public Use
  Company Number: DE-AMRYT PHARMACEUTICALS DAC-AEGR005973

PATIENT

DRUGS (8)
  1. METRELEPTIN [Suspect]
     Active Substance: METRELEPTIN
     Indication: Familial partial lipodystrophy
     Dosage: 5 MILLIGRAM, QD
     Dates: start: 20210720
  2. METRELEPTIN [Suspect]
     Active Substance: METRELEPTIN
     Dosage: 7.5 MILLIGRAM, QD
     Dates: start: 20211116
  3. METRELEPTIN [Suspect]
     Active Substance: METRELEPTIN
     Dosage: 10 MILLIGRAM, QD
     Dates: start: 20220222
  4. METFORMIN [Concomitant]
     Active Substance: METFORMIN HYDROCHLORIDE
     Indication: Product used for unknown indication
     Dosage: 1000 MILLIGRAM, QD
  5. INSULIN GLARGINE [Concomitant]
     Active Substance: INSULIN GLARGINE
     Indication: Product used for unknown indication
     Dosage: 30 UNITS, QD
     Dates: end: 20220430
  6. INSULIN GLARGINE [Concomitant]
     Active Substance: INSULIN GLARGINE
     Dosage: 40 UNITS, QD
     Dates: start: 20220501
  7. INSULIN LISPRO [Concomitant]
     Active Substance: INSULIN LISPRO
     Indication: Product used for unknown indication
     Dosage: 32 UNITS, TID
  8. CHOLECALCIFEROL [Concomitant]
     Active Substance: CHOLECALCIFEROL
     Indication: Product used for unknown indication
     Dosage: 1000 UNITS, QD
     Dates: start: 20220222

REACTIONS (1)
  - Hepatic steatosis [Not Recovered/Not Resolved]

NARRATIVE: CASE EVENT DATE: 20220530
